FAERS Safety Report 8710453 (Version 4)
Quarter: 2013Q4

REPORT INFORMATION
  Report Type: Spontaneous
  Country: US (occurrence: US)
  Receive Date: 20120807
  Receipt Date: 20131106
  Transmission Date: 20140711
  Serious: Yes (Death, Hospitalization, Other)
  Sender: FDA-Public Use
  Company Number: US-009507513-1207USA007714

PATIENT
  Sex: Male

DRUGS (2)
  1. VICTRELIS [Suspect]
     Indication: HEPATITIS C
     Dosage: 800 MG, TID
     Route: 048
     Dates: start: 20120521
  2. PROMACTA [Concomitant]

REACTIONS (7)
  - Multi-organ failure [Fatal]
  - Peritonitis bacterial [Fatal]
  - Sepsis [Fatal]
  - Abdominal distension [Unknown]
  - Weight increased [Unknown]
  - Waist circumference increased [Unknown]
  - Dyspnoea [Unknown]
